FAERS Safety Report 6241208-2 (Version None)
Quarter: 2009Q2

REPORT INFORMATION
  Report Type: 
  Country: None (occurrence: None)
  Receive Date: 20090623
  Receipt Date: 20090616
  Transmission Date: 20091009
  Serious: Yes (Hospitalization, Other)
  Sender: FDA-Public Use
  Company Number: US-ABBOTT-09P-163-0577508-00

PATIENT
  Sex: Female
  Weight: 67.646 kg

DRUGS (11)
  1. HUMIRA [Suspect]
     Indication: RHEUMATOID ARTHRITIS
     Route: 058
     Dates: start: 20071101, end: 20090409
  2. LEUFLODEMINDE [Concomitant]
     Indication: RHEUMATOID ARTHRITIS
     Dates: end: 20090409
  3. ALBUTEROL [Concomitant]
     Indication: HYPERSENSITIVITY
     Route: 055
  4. SYNTHROID [Concomitant]
     Indication: HYPERTHYROIDISM
  5. ASPIRIN [Concomitant]
     Indication: DRUG USE FOR UNKNOWN INDICATION
  6. PREVACID [Concomitant]
     Indication: GASTROOESOPHAGEAL REFLUX DISEASE
  7. ESTROGEN [Concomitant]
     Indication: HORMONE REPLACEMENT THERAPY
  8. PRAVASTATIN [Concomitant]
     Indication: BLOOD CHOLESTEROL INCREASED
  9. FOSAMAX [Concomitant]
     Indication: OSTEOPENIA
  10. SUDAFED 12 HOUR [Concomitant]
     Indication: HYPERSENSITIVITY
  11. CELEBREX [Concomitant]
     Indication: RHEUMATOID ARTHRITIS

REACTIONS (5)
  - AGRANULOCYTOSIS [None]
  - CANDIDIASIS [None]
  - PANCYTOPENIA [None]
  - PNEUMONIA [None]
  - WHITE BLOOD CELL COUNT DECREASED [None]
